FAERS Safety Report 21349701 (Version 1)
Quarter: 2022Q3

REPORT INFORMATION
  Report Type: Spontaneous
  Country: US (occurrence: US)
  Receive Date: 20220919
  Receipt Date: 20220919
  Transmission Date: 20221027
  Serious: No
  Sender: FDA-Public Use
  Company Number: US-009507513-2209USA000117

PATIENT
  Age: 63 Year
  Sex: Male

DRUGS (2)
  1. BELSOMRA [Suspect]
     Active Substance: SUVOREXANT
  2. BELSOMRA [Suspect]
     Active Substance: SUVOREXANT
     Dosage: 15 MILLIGRAM, PRODUCT QUANTITY: 1

REACTIONS (4)
  - Drug ineffective [Unknown]
  - Product blister packaging issue [Unknown]
  - Packaging design issue [Unknown]
  - Product packaging difficult to open [Unknown]
